FAERS Safety Report 12723695 (Version 1)
Quarter: 2016Q3

REPORT INFORMATION
  Report Type: Spontaneous
  Country: US (occurrence: US)
  Receive Date: 20160908
  Receipt Date: 20160908
  Transmission Date: 20161109
  Serious: No
  Sender: FDA-Public Use
  Company Number: US-BAYER-2016-174802

PATIENT
  Age: 86 Year
  Sex: Female
  Weight: 104.31 kg

DRUGS (1)
  1. CLARITIN REDITABS [Suspect]
     Active Substance: LORATADINE
     Dosage: 1 DF, UNK
     Route: 048
     Dates: start: 201608

REACTIONS (2)
  - Product use issue [None]
  - Pruritus generalised [Not Recovered/Not Resolved]
